FAERS Safety Report 11361937 (Version 1)
Quarter: 2015Q3

REPORT INFORMATION
  Report Type: Report from Study
  Country: ZA (occurrence: ZA)
  Receive Date: 20150810
  Receipt Date: 20150810
  Transmission Date: 20151125
  Serious: Yes (Death, Hospitalization)
  Sender: FDA-Public Use
  Company Number: ZA-AMGEN-ZAFSL2015079536

PATIENT
  Age: 54 Year
  Sex: Male

DRUGS (1)
  1. ARANESP [Suspect]
     Active Substance: DARBEPOETIN ALFA
     Indication: PRODUCT USED FOR UNKNOWN INDICATION
     Dosage: 20 MUG, QWK
     Route: 058
     Dates: start: 201307

REACTIONS (3)
  - Death [Fatal]
  - Blood pressure increased [Unknown]
  - Haematemesis [Unknown]

NARRATIVE: CASE EVENT DATE: 20150725
